FAERS Safety Report 6410154-3 (Version None)
Quarter: 2009Q4

REPORT INFORMATION
  Report Type: 
  Country: None (occurrence: None)
  Receive Date: 20091022
  Receipt Date: 20091019
  Transmission Date: 20100525
  Serious: No
  Sender: FDA-Public Use
  Company Number: GB-ROCHE-662172

PATIENT
  Sex: Female
  Weight: 62 kg

DRUGS (1)
  1. TAMIFLU [Suspect]
     Route: 048
     Dates: start: 20090813, end: 20090818

REACTIONS (2)
  - NO ADVERSE EVENT [None]
  - PREGNANCY [None]
